FAERS Safety Report 10064364 (Version 1)
Quarter: 2014Q2

REPORT INFORMATION
  Report Type: Spontaneous
  Country: US (occurrence: None)
  Receive Date: 20140407
  Receipt Date: 20140407
  Transmission Date: 20141212
  Serious: Yes (Other)
  Sender: FDA-Public Use
  Company Number: None

PATIENT
  Age: 5 Month
  Sex: Female

DRUGS (1)
  1. ALBUTEROL [Suspect]
     Route: 055

REACTIONS (2)
  - Tachycardia [None]
  - Incorrect dose administered [None]
